FAERS Safety Report 4983572-8 (Version None)
Quarter: 2006Q2

REPORT INFORMATION
  Report Type: 
  Country: None (occurrence: None)
  Receive Date: 20060425
  Receipt Date: 20060425
  Transmission Date: 20061013
  Serious: Yes (Other)
  Sender: FDA-Public Use
  Company Number: None

PATIENT
  Age: 57 Year
  Sex: Male
  Weight: 147 kg

DRUGS (20)
  1. LISINOPRIL [Suspect]
  2. ASPIRIN [Concomitant]
  3. GLYBURIDE [Concomitant]
  4. FLUOXETINE HCL [Concomitant]
  5. QUETIAPINE FUMARATE [Concomitant]
  6. SODIUM CHLORIDE [Concomitant]
  7. ALBUTEROL / IPRATROP [Concomitant]
  8. FLUNISOLIDE [Concomitant]
  9. ABSORBASE [Concomitant]
  10. VARDENAFIL HCL [Concomitant]
  11. MELOXICAM [Concomitant]
  12. LIDOCAINE [Concomitant]
  13. ROSIGLITAZONE MALEATE [Concomitant]
  14. HYDROCHLOROTHIAZIDE [Concomitant]
  15. FELODIPINE [Concomitant]
  16. METOPROLOL TARTRATE [Concomitant]
  17. ATORVASTATIN CALCIUM [Concomitant]
  18. GEMFIBROZIL [Concomitant]
  19. METFORMIN HYDROCHLORIDE [Concomitant]
  20. FORMOTEROL FUMARATE [Concomitant]

REACTIONS (1)
  - COLD SWEAT [None]
